FAERS Safety Report 9454068 (Version 1)
Quarter: 2013Q3

REPORT INFORMATION
  Report Type: Spontaneous
  Country: TR (occurrence: TR)
  Receive Date: 20130812
  Receipt Date: 20130812
  Transmission Date: 20140515
  Serious: Yes (Other)
  Sender: FDA-Public Use
  Company Number: TR-CUBIST PHARMACEUTICAL, INC.-2013CBST000224

PATIENT
  Age: 55 Year
  Sex: Male

DRUGS (3)
  1. CUBICIN [Suspect]
     Indication: DIABETIC FOOT INFECTION
     Dosage: 500 MG, QD
     Route: 065
  2. CUBICIN [Suspect]
     Indication: OFF LABEL USE
  3. PIPERACILLIN/TAZOBACTAM [Suspect]
     Indication: DIABETIC FOOT INFECTION
     Dosage: 4.5 G, TID
     Route: 065

REACTIONS (3)
  - Deafness unilateral [Not Recovered/Not Resolved]
  - Tinnitus [Not Recovered/Not Resolved]
  - Ear discomfort [Not Recovered/Not Resolved]
